FAERS Safety Report 13739263 (Version 1)
Quarter: 2017Q3

REPORT INFORMATION
  Report Type: Report from Study
  Country: US (occurrence: US)
  Receive Date: 20170710
  Receipt Date: 20170710
  Transmission Date: 20171127
  Serious: Yes (Hospitalization)
  Sender: FDA-Public Use
  Company Number: US-ACTELION-A-US2015-122794

PATIENT
  Age: 47 Year
  Sex: Female
  Weight: 55.78 kg

DRUGS (4)
  1. DILTIAZEM. [Concomitant]
     Active Substance: DILTIAZEM
  2. VELETRI [Suspect]
     Active Substance: EPOPROSTENOL
     Indication: PULMONARY ARTERIAL HYPERTENSION
     Dosage: 69 NG/KG, PER MIN
     Route: 042
     Dates: start: 20120512
  3. LETAIRIS [Concomitant]
     Active Substance: AMBRISENTAN
  4. REVATIO [Concomitant]
     Active Substance: SILDENAFIL CITRATE

REACTIONS (12)
  - Cellulitis [Unknown]
  - Cough [Unknown]
  - Pain in jaw [Unknown]
  - Flushing [Unknown]
  - Malaise [Unknown]
  - Catheter placement [Unknown]
  - Erythema [Unknown]
  - Pain in extremity [Unknown]
  - Sinusitis [Unknown]
  - Pyrexia [Unknown]
  - Diarrhoea [Unknown]
  - Device issue [Recovered/Resolved]
